FAERS Safety Report 7936876-0 (Version None)
Quarter: 2011Q4

REPORT INFORMATION
  Report Type: 
  Country: None (occurrence: None)
  Receive Date: 20111123
  Receipt Date: 20111123
  Transmission Date: 20120403
  Serious: Yes (Hospitalization)
  Sender: FDA-Public Use
  Company Number: None

PATIENT
  Sex: Male
  Weight: 89 kg

DRUGS (14)
  1. ASPIRIN [Concomitant]
     Route: 048
  2. CALAN [Concomitant]
     Route: 048
  3. POTASSIUM [Concomitant]
     Route: 048
  4. ALBUTEROL [Concomitant]
     Route: 048
  5. LOVAZA [Concomitant]
     Route: 048
  6. COLCHICINE [Concomitant]
     Route: 048
  7. COREG [Concomitant]
     Route: 048
  8. LASIX [Concomitant]
     Route: 048
  9. VITAMIN B-12 [Concomitant]
     Route: 048
  10. EPLERENONE [Concomitant]
     Route: 048
  11. LIPITOR [Concomitant]
     Route: 048
  12. PRADAXA [Suspect]
     Indication: ATRIAL FIBRILLATION
     Dosage: 150 MG
     Route: 048
  13. VITAMIN D [Concomitant]
     Route: 048
  14. NITROGLYCERIN [Concomitant]

REACTIONS (4)
  - CHEST PAIN [None]
  - HYPERHIDROSIS [None]
  - GASTROOESOPHAGEAL REFLUX DISEASE [None]
  - CHEST DISCOMFORT [None]
